FAERS Safety Report 5520090-2 (Version None)
Quarter: 2007Q4

REPORT INFORMATION
  Report Type: 
  Country: None (occurrence: None)
  Receive Date: 20071116
  Receipt Date: 20071106
  Transmission Date: 20080405
  Serious: Yes (Death, Other)
  Sender: FDA-Public Use
  Company Number: JP-SHR-JP-2007-042869

PATIENT
  Age: 71 Year
  Sex: Female

DRUGS (5)
  1. SOTALOL HCL [Suspect]
     Indication: VENTRICULAR FIBRILLATION
     Dosage: 80 MG, 1X/DAY
     Route: 048
     Dates: start: 20060316, end: 20060329
  2. PROTECADIN [Concomitant]
     Dosage: UNK, UNK
     Route: 048
     Dates: start: 20060313, end: 20060425
  3. LASIX [Concomitant]
     Dosage: UNK, UNK
     Route: 048
     Dates: start: 20060315, end: 20060502
  4. ALDACTONE [Concomitant]
     Dosage: UNK, UNK
     Route: 048
     Dates: start: 20060315, end: 20060502
  5. MICARDIS [Concomitant]
     Dates: start: 20060315, end: 20060415

REACTIONS (5)
  - ACUTE RESPIRATORY DISTRESS SYNDROME [None]
  - CARDIAC FAILURE [None]
  - INFECTION [None]
  - VENTRICULAR FIBRILLATION [None]
  - VENTRICULAR TACHYCARDIA [None]
